FAERS Safety Report 25988777 (Version 2)
Quarter: 2025Q4

REPORT INFORMATION
  Report Type: Spontaneous
  Country: IN (occurrence: IN)
  Receive Date: 20251103
  Receipt Date: 20251127
  Transmission Date: 20260117
  Serious: Yes (Other)
  Sender: REGENERON
  Company Number: IN-BAYER-2025A142837

PATIENT
  Sex: Male

DRUGS (7)
  1. EYLEA [Suspect]
     Active Substance: AFLIBERCEPT
     Indication: Cystoid macular oedema
     Dosage: 2 MG, ONCE (RIGHT EYE), 40 MG/ML, SOLUTION FOR INJECTION
     Route: 031
     Dates: start: 20240111, end: 20240111
  2. EYLEA [Suspect]
     Active Substance: AFLIBERCEPT
     Indication: Retinal vein occlusion
     Dosage: 2 MG, ONCE (RIGHT EYE), 40 MG/ML, SOLUTION FOR INJECTION
     Route: 031
     Dates: start: 20240724, end: 20240724
  3. EYLEA [Suspect]
     Active Substance: AFLIBERCEPT
     Dosage: 2 MG, ONCE (RIGHT EYE), 40 MG/ML, SOLUTION FOR INJECTION
     Route: 031
     Dates: start: 20241223, end: 20241223
  4. EYLEA [Suspect]
     Active Substance: AFLIBERCEPT
     Dosage: 2 MG, ONCE (RIGHT EYE), 40 MG/ML, SOLUTION FOR INJECTION
     Route: 031
     Dates: start: 20250306, end: 20250306
  5. EYLEA [Suspect]
     Active Substance: AFLIBERCEPT
     Dosage: 2 MG, ONCE (RIGHT EYE), 40 MG/ML, SOLUTION FOR INJECTION
     Route: 031
     Dates: start: 20250508, end: 20250508
  6. EYLEA [Suspect]
     Active Substance: AFLIBERCEPT
     Dosage: 2 MG, ONCE (RIGHT EYE), 40 MG/ML, SOLUTION FOR INJECTION
     Route: 031
     Dates: start: 20250710, end: 20250710
  7. EYLEA [Suspect]
     Active Substance: AFLIBERCEPT
     Dosage: 2 MG, ONCE (LEFT EYE), 40 MG/ML, SOLUTION FOR INJECTION
     Route: 031
     Dates: start: 20250925, end: 20250925

REACTIONS (4)
  - Visual impairment [Not Recovered/Not Resolved]
  - Retinal vein occlusion [Not Recovered/Not Resolved]
  - Cystoid macular oedema [Recovered/Resolved]
  - Cystoid macular oedema [Unknown]

NARRATIVE: CASE EVENT DATE: 20250901
